FAERS Safety Report 10064194 (Version 1)
Quarter: 2013Q4

REPORT INFORMATION
  Report Type: Spontaneous
  Country: US (occurrence: None)
  Receive Date: 20131230
  Receipt Date: 20131230
  Transmission Date: 20140711
  Serious: Yes (Hospitalization)
  Sender: FDA-Public Use
  Company Number: US-000861

PATIENT
  Age: 79 Year
  Sex: Female

DRUGS (16)
  1. GATTEX 0.13 ML [Suspect]
     Indication: SHORT-BOWEL SYNDROME
     Dosage: 0.13 ML, QD, STREN/VOLUM: 0.13 ML FREQU: ONCE A DAY SUBCUTANEOUS)
     Route: 058
     Dates: start: 20131002, end: 20131218
  2. HUMIRA [Concomitant]
  3. LOMOTIL/00034001 [Concomitant]
  4. MAGNESIUM [Concomitant]
  5. POTASSIUM [Concomitant]
  6. FOLIC ACID [Concomitant]
  7. CALCIUM [Concomitant]
  8. AMLODIPINE [Concomitant]
  9. VITAMIN D NOS [Concomitant]
  10. VITAMIN B12 NOS [Concomitant]
  11. FISH OIL [Concomitant]
  12. MULTIVITAMINS [Concomitant]
  13. FIBER [Concomitant]
  14. ALLOPURINOL [Concomitant]
  15. CALCITROL [Concomitant]
  16. SOLUTIONS FOR PARENTERAL NUTRITION [Concomitant]

REACTIONS (2)
  - Fatigue [None]
  - Dehydration [None]
